FAERS Safety Report 25794633 (Version 1)
Quarter: 2025Q3

REPORT INFORMATION
  Report Type: Spontaneous
  Country: GB (occurrence: GB)
  Receive Date: 20250912
  Receipt Date: 20250912
  Transmission Date: 20251021
  Serious: Yes (Hospitalization, Other)
  Sender: DR REDDYS
  Company Number: None

PATIENT
  Age: 68 Year
  Sex: Female
  Weight: 76 kg

DRUGS (3)
  1. CLARITHROMYCIN\LANSOPRAZOLE\METRONIDAZOLE [Suspect]
     Active Substance: CLARITHROMYCIN\LANSOPRAZOLE\METRONIDAZOLE
     Indication: Product used for unknown indication
  2. CLARITHROMYCIN\LANSOPRAZOLE\METRONIDAZOLE [Suspect]
     Active Substance: CLARITHROMYCIN\LANSOPRAZOLE\METRONIDAZOLE
     Indication: Product used for unknown indication
  3. CLARITHROMYCIN\LANSOPRAZOLE\METRONIDAZOLE [Suspect]
     Active Substance: CLARITHROMYCIN\LANSOPRAZOLE\METRONIDAZOLE
     Indication: Product used for unknown indication

REACTIONS (2)
  - Seizure [Recovered/Resolved]
  - Hyperhidrosis [Recovered/Resolved]

NARRATIVE: CASE EVENT DATE: 20250831
